FAERS Safety Report 17631867 (Version 1)
Quarter: 2020Q2

REPORT INFORMATION
  Report Type: Spontaneous
  Country: US (occurrence: US)
  Receive Date: 20200403
  Receipt Date: 20200403
  Transmission Date: 20200713
  Serious: Yes (Hospitalization)
  Sender: FDA-Public Use
  Company Number: None

PATIENT
  Age: 63 Year
  Sex: Male
  Weight: 120.2 kg

DRUGS (5)
  1. WARFARIN 4MG [Suspect]
     Active Substance: WARFARIN
     Indication: COAGULOPATHY
     Dosage: ?          QUANTITY:4 MG MILLIGRAM(S);?
     Route: 048
     Dates: start: 20090515
  2. WARFARIN SODIUM 5MG TABLET [Suspect]
     Active Substance: WARFARIN SODIUM
     Indication: FACTOR V LEIDEN CARRIER
     Route: 048
     Dates: start: 20090515
  3. FISH OIL CAPSULS [Concomitant]
  4. ALOPURNOL [Concomitant]
  5. LOSARTIN [Concomitant]
     Active Substance: LOSARTAN

REACTIONS (2)
  - Muscle strain [None]
  - Muscle spasms [None]

NARRATIVE: CASE EVENT DATE: 20200220
